FAERS Safety Report 8478663-3 (Version None)
Quarter: 2012Q2

REPORT INFORMATION
  Report Type: 
  Country: None (occurrence: None)
  Receive Date: 20120629
  Receipt Date: 20120620
  Transmission Date: 20120825
  Serious: Yes (Hospitalization)
  Sender: FDA-Public Use
  Company Number: ES-PERRIGO-12ES005410

PATIENT
  Age: 74 Year
  Sex: Male

DRUGS (1)
  1. IBUPROFEN [Suspect]
     Indication: SCIATICA
     Dosage: 600 MG, UNK
     Route: 048

REACTIONS (6)
  - MESENTERIC PANNICULITIS [None]
  - EPIGASTRIC DISCOMFORT [None]
  - DUODENITIS [None]
  - MALAISE [None]
  - ABDOMINAL PAIN UPPER [None]
  - HYPOTENSION [None]
